APPROVED DRUG PRODUCT: HALOPERIDOL
Active Ingredient: HALOPERIDOL
Strength: 5MG
Dosage Form/Route: TABLET;ORAL
Application: A071725 | Product #001
Applicant: ROYCE LABORATORIES INC
Approved: Dec 24, 1987 | RLD: No | RS: No | Type: DISCN